FAERS Safety Report 9277158 (Version 1)
Quarter: 2013Q2

REPORT INFORMATION
  Report Type: Spontaneous
  Country: US (occurrence: US)
  Receive Date: 20130508
  Receipt Date: 20130508
  Transmission Date: 20140414
  Serious: Yes (Other)
  Sender: FDA-Public Use
  Company Number: US-AMGEN-USASP2013031282

PATIENT
  Sex: 0

DRUGS (2)
  1. NEULASTA [Suspect]
     Indication: PRODUCT USED FOR UNKNOWN INDICATION
     Dosage: 6 MG, UNK
  2. CHEMOTHERAPEUTICS [Concomitant]
     Indication: LEUKAEMIA
     Dosage: UNK

REACTIONS (2)
  - White blood cell count abnormal [Unknown]
  - Bone pain [Unknown]
